FAERS Safety Report 5343186-7 (Version None)
Quarter: 2007Q2

REPORT INFORMATION
  Report Type: 
  Country: None (occurrence: None)
  Receive Date: 20070416
  Receipt Date: 20070313
  Transmission Date: 20071010
  Serious: No
  Sender: FDA-Public Use
  Company Number: 2007SP000886

PATIENT
  Age: 67 Year
  Sex: Male
  Weight: 113.8529 kg

DRUGS (14)
  1. LUNESTA [Suspect]
     Indication: INSOMNIA
     Dosage: 3 MG;HS;ORAL
     Route: 048
     Dates: start: 20070301, end: 20070301
  2. DILTIAZEM [Concomitant]
  3. WARFARIN SODIUM [Concomitant]
  4. PACERONE [Concomitant]
  5. ZYRTEC [Concomitant]
  6. QUINAPRIL [Concomitant]
  7. PREVACID [Concomitant]
  8. MELOXICAM [Concomitant]
  9. ADVAIR DISKUS 100/50 [Concomitant]
  10. NASONEX [Concomitant]
  11. ALBUTEROL [Concomitant]
  12. GLUCOSAMINE W/CHONDROITIN [Concomitant]
  13. VITAMIN CAP [Concomitant]
  14. AMBIEN [Concomitant]

REACTIONS (1)
  - DYSGEUSIA [None]
